FAERS Safety Report 7626775-6 (Version None)
Quarter: 2011Q3

REPORT INFORMATION
  Report Type: 
  Country: None (occurrence: None)
  Receive Date: 20110721
  Receipt Date: 20110715
  Transmission Date: 20111222
  Serious: Yes (Hospitalization)
  Sender: FDA-Public Use
  Company Number: US-SANOFI-AVENTIS-2011SA043507

PATIENT
  Age: 54 Year
  Sex: Male
  Weight: 117.01 kg

DRUGS (10)
  1. INSULIN LISPRO [Concomitant]
     Dates: start: 20110328
  2. HYDROCODONE BITARTRATE [Concomitant]
     Dates: start: 20080101
  3. ASPIRIN [Concomitant]
     Dates: start: 20010101
  4. AMLODIPINE BESYLATE [Concomitant]
     Dates: start: 20080101
  5. COZAAR [Concomitant]
     Dates: start: 20110126
  6. INSULIN GLARGINE [Suspect]
     Indication: TYPE 2 DIABETES MELLITUS
     Route: 058
     Dates: start: 20110328
  7. AMLODIPINE BESYLATE [Concomitant]
     Dates: start: 20110613
  8. ENALAPRIL MALEATE [Concomitant]
     Dates: start: 20100101
  9. BLINDED THERAPY [Suspect]
     Indication: TYPE 2 DIABETES MELLITUS
     Route: 058
     Dates: start: 20110328, end: 20110606
  10. GABAPENTIN [Concomitant]
     Dates: start: 20080101

REACTIONS (1)
  - DYSPNOEA [None]
